FAERS Safety Report 8242118-1 (Version None)
Quarter: 2012Q1

REPORT INFORMATION
  Report Type: 
  Country: None (occurrence: None)
  Receive Date: 20120314
  Receipt Date: 20100603
  Transmission Date: 20120608
  Serious: No
  Sender: FDA-Public Use
  Company Number: PHHY2010US37339

PATIENT
  Sex: Female

DRUGS (3)
  1. FANAPT [Suspect]
     Indication: SCHIZOPHRENIA
     Dosage: BID, ORAL
     Route: 048
     Dates: start: 20100505, end: 20100606
  2. COGENTIN [Concomitant]
  3. VISTARIL [Concomitant]

REACTIONS (4)
  - EYE PAIN [None]
  - HEADACHE [None]
  - EYE DISORDER [None]
  - EYE MOVEMENT DISORDER [None]
